FAERS Safety Report 10553660 (Version 1)
Quarter: 2014Q4

REPORT INFORMATION
  Report Type: Spontaneous
  Country: SV (occurrence: None)
  Receive Date: 20141028
  Receipt Date: 20141028
  Transmission Date: 20150529
  Serious: No
  Sender: FDA-Public Use
  Company Number: SK2014GSK002585

PATIENT
  Sex: Male

DRUGS (2)
  1. SEROXAT [Suspect]
     Active Substance: PAROXETINE HYDROCHLORIDE
     Indication: DEPRESSION
     Dates: end: 201408
  2. RIVOTRIL (CLONAZEPAM) UNKNOWN; UNKNOWN [Concomitant]

REACTIONS (8)
  - Gait disturbance [None]
  - Coordination abnormal [None]
  - Nausea [None]
  - Product quality issue [None]
  - Movement disorder [None]
  - Confusional state [None]
  - Abasia [None]
  - Head titubation [None]

NARRATIVE: CASE EVENT DATE: 201408
